FAERS Safety Report 8596234 (Version 4)
Quarter: 2014Q1

REPORT INFORMATION
  Report Type: Spontaneous
  Country: US (occurrence: US)
  Receive Date: 20120605
  Receipt Date: 20140115
  Transmission Date: 20141002
  Serious: Yes (Disabling)
  Sender: FDA-Public Use
  Company Number: US-ASTRAZENECA-2012SE34865

PATIENT
  Age: 51 Year
  Sex: Male

DRUGS (13)
  1. NEXIUM [Suspect]
     Indication: HYPERCHLORHYDRIA
     Route: 048
     Dates: start: 20050303
  2. NEXIUM [Suspect]
     Indication: HYPERCHLORHYDRIA
     Dosage: 2 TIMES DAY
     Route: 048
     Dates: start: 2008, end: 2013
  3. NEXIUM [Suspect]
     Indication: HYPERCHLORHYDRIA
     Route: 048
     Dates: start: 20080125
  4. PRILOSEC [Suspect]
     Route: 048
  5. PRILOSEC [Suspect]
     Route: 048
     Dates: start: 20100629
  6. OMEPRAZOLE OTC [Suspect]
     Route: 048
  7. MULTIVITAMINS [Concomitant]
     Dosage: EVERYDAY
  8. BENZTROPINE [Concomitant]
  9. PROZAC [Concomitant]
  10. FUROSEMIDE [Concomitant]
     Route: 048
     Dates: start: 20100630
  11. VENLAFAXINE HYDROCHLORIDE [Concomitant]
     Route: 048
     Dates: start: 20100630
  12. AMITRIPTYLINE HYDROCHLORIDE [Concomitant]
     Route: 048
     Dates: start: 20100630
  13. SPIRONOLACTONE [Concomitant]
     Route: 048
     Dates: start: 20100630

REACTIONS (6)
  - Mental disability [Unknown]
  - Osteoporosis [Unknown]
  - Multiple fractures [Unknown]
  - Ankle fracture [Unknown]
  - Bone disorder [Unknown]
  - Depression [Unknown]
